FAERS Safety Report 4557601-X (Version None)
Quarter: 2005Q1

REPORT INFORMATION
  Report Type: 
  Country: None (occurrence: None)
  Receive Date: 20050120
  Receipt Date: 20041108
  Transmission Date: 20050727
  Serious: Yes (Life-Threatening, Hospitalization, Disabling)
  Sender: FDA-Public Use
  Company Number: US-MERCK-0411USA01509

PATIENT
  Age: 44 Year
  Sex: Female
  Weight: 74 kg

DRUGS (8)
  1. VIOXX [Suspect]
     Indication: ARTHRITIS
     Route: 048
     Dates: end: 20041001
  2. VIOXX [Suspect]
     Route: 048
     Dates: end: 20041001
  3. VIOXX [Suspect]
     Indication: PAIN
     Route: 048
     Dates: end: 20041001
  4. VIOXX [Suspect]
     Route: 048
     Dates: end: 20041001
  5. VALIUM [Concomitant]
     Route: 065
  6. EFFEXOR [Concomitant]
     Indication: ANXIETY
     Route: 048
     Dates: start: 20040501
  7. MOTRIN [Concomitant]
     Indication: PAIN
     Route: 048
  8. TYLENOL W/ CODEINE NO. 3 [Concomitant]
     Indication: PAIN
     Route: 048

REACTIONS (3)
  - CARDIAC ARREST [None]
  - HYPOAESTHESIA [None]
  - THROMBOSIS [None]
